FAERS Safety Report 11482857 (Version 1)
Quarter: 2015Q3

REPORT INFORMATION
  Report Type: Spontaneous
  Country: US (occurrence: US)
  Receive Date: 20150909
  Receipt Date: 20150909
  Transmission Date: 20151125
  Serious: No
  Sender: FDA-Public Use
  Company Number: US-JAZZ-JPI-P-034583

PATIENT
  Age: 55 Year
  Sex: Male
  Weight: 81.82 kg

DRUGS (2)
  1. SYNTHROID [Concomitant]
     Active Substance: LEVOTHYROXINE SODIUM
     Indication: HYPOTHYROIDISM
     Dosage: UNK
  2. XYREM [Suspect]
     Active Substance: SODIUM OXYBATE
     Indication: SLEEP DISORDER
     Dosage: 2.25 G, BID
     Route: 048
     Dates: start: 20120131

REACTIONS (4)
  - Blood cholesterol increased [Not Recovered/Not Resolved]
  - Constipation [Not Recovered/Not Resolved]
  - Blood sodium increased [Not Recovered/Not Resolved]
  - Product use issue [Unknown]

NARRATIVE: CASE EVENT DATE: 201307
